FAERS Safety Report 4401121-X (Version None)
Quarter: 2004Q3

REPORT INFORMATION
  Report Type: 
  Country: None (occurrence: None)
  Receive Date: 20040907
  Receipt Date: 20031107
  Transmission Date: 20050211
  Serious: No
  Sender: FDA-Public Use
  Company Number: US-BRISTOL-MYERS SQUIBB COMPANY-12430815

PATIENT
  Age: 86 Year
  Sex: Male
  Weight: 83 kg

DRUGS (3)
  1. COUMADIN [Suspect]
     Indication: ATRIAL FIBRILLATION
     Dosage: 2.5 MG ALTERNATING 5 MG
     Route: 048
  2. ATENOLOL [Concomitant]
  3. LIPITOR [Concomitant]

REACTIONS (1)
  - HAEMATURIA [None]
